FAERS Safety Report 18016304 (Version 3)
Quarter: 2021Q2

REPORT INFORMATION
  Report Type: Spontaneous
  Country: FR (occurrence: FR)
  Receive Date: 20200713
  Receipt Date: 20210412
  Transmission Date: 20210717
  Serious: Yes (Death, Hospitalization, Other)
  Sender: FDA-Public Use
  Company Number: FR-PFIZER INC-2020265810

PATIENT
  Age: 63 Year
  Sex: Male
  Weight: 70 kg

DRUGS (21)
  1. DIFFU K [Concomitant]
     Active Substance: POTASSIUM CHLORIDE
     Dosage: UNK
  2. KARDEGIC [Concomitant]
     Active Substance: ASPIRIN DL-LYSINE
     Dosage: UNK
     Route: 065
  3. AMLODIPINE [Concomitant]
     Active Substance: AMLODIPINE BESYLATE
     Dosage: 10 MG
     Route: 048
     Dates: end: 20150331
  4. LEDERFOLINE [Concomitant]
     Active Substance: LEUCOVORIN CALCIUM
     Dosage: UNK
  5. SOLIRIS [Suspect]
     Active Substance: ECULIZUMAB
     Indication: HAEMOLYTIC URAEMIC SYNDROME
     Dosage: UNK
     Route: 042
     Dates: start: 20150325, end: 20150325
  6. CAPTOPRIL. [Concomitant]
     Active Substance: CAPTOPRIL
     Dosage: 75 MG
     Route: 048
     Dates: end: 20150312
  7. HYPERIUM [Concomitant]
     Active Substance: RILMENIDINE PHOSPHATE
     Dosage: UNK
     Route: 065
     Dates: start: 20150417
  8. LASILIX [FUROSEMIDE] [Concomitant]
     Active Substance: FUROSEMIDE
     Indication: HYPERTENSION
     Dosage: 500 MG, 1X/DAY
     Route: 048
     Dates: start: 20150309, end: 20150410
  9. SOLIRIS [Suspect]
     Active Substance: ECULIZUMAB
     Indication: ATYPICAL HAEMOLYTIC URAEMIC SYNDROME
  10. SPECIAFOLDINE [Concomitant]
     Active Substance: FOLIC ACID
     Dosage: UNK
     Route: 065
     Dates: start: 20150417
  11. LASILIX [FUROSEMIDE] [Suspect]
     Active Substance: FUROSEMIDE
     Indication: HYPERTENSION
     Dosage: 500 MG, 1X/DAY
     Route: 048
     Dates: start: 20150309, end: 20150417
  12. SULFADIAZINE. [Suspect]
     Active Substance: SULFADIAZINE
     Dosage: UNK
     Route: 065
  13. ESIDREX [Concomitant]
     Active Substance: HYDROCHLOROTHIAZIDE
     Dosage: UNK
     Route: 065
     Dates: start: 20150417
  14. SULFAMERAZINE [Suspect]
     Active Substance: SULFAMERAZINE
     Dosage: UNK
     Route: 065
  15. ATARAX [Concomitant]
     Active Substance: HYDROXYZINE HYDROCHLORIDE
     Dosage: UNK
  16. PANTOPRAZOLE [Suspect]
     Active Substance: PANTOPRAZOLE
     Indication: PROPHYLAXIS AGAINST GASTROINTESTINAL ULCER
     Dosage: 40 MG, 1X/DAY (40 MILLIGRAM, QD)
     Route: 048
     Dates: start: 20150306, end: 20150326
  17. ORACILLINE [PHENOXYMETHYLPENICILLIN] [Suspect]
     Active Substance: PENICILLIN V
     Indication: PROPHYLAXIS
     Dosage: 2 MIU, 1X/DAY
     Route: 048
     Dates: start: 20150325, end: 20150410
  18. PHENOXYMETHYLPENICILLIN BENZATHINE [Suspect]
     Active Substance: PENICILLIN V BENZATHINE
     Dosage: UNK
     Route: 065
  19. NEBIVOLOL. [Suspect]
     Active Substance: NEBIVOLOL
     Indication: HYPERTENSION
     Dosage: 5 MG, 1X/DAY
     Route: 048
     Dates: start: 20150316, end: 20150407
  20. CETIRIZINE [Concomitant]
     Active Substance: CETIRIZINE HYDROCHLORIDE
     Dosage: UNK
  21. AMLOR [Concomitant]
     Active Substance: AMLODIPINE BESYLATE
     Dosage: UNK
     Route: 065
     Dates: start: 20150417

REACTIONS (6)
  - Adenocarcinoma pancreas [Fatal]
  - Condition aggravated [Fatal]
  - Eosinophilia [Fatal]
  - Off label use [Fatal]
  - Drug reaction with eosinophilia and systemic symptoms [Fatal]
  - Rash maculo-papular [Fatal]

NARRATIVE: CASE EVENT DATE: 20150327
